FAERS Safety Report 9260283 (Version 1)
Quarter: 2013Q2

REPORT INFORMATION
  Report Type: Spontaneous
  Country: US (occurrence: US)
  Receive Date: 20130429
  Receipt Date: 20130429
  Transmission Date: 20140414
  Serious: No
  Sender: FDA-Public Use
  Company Number: US-PFIZER INC-2013130340

PATIENT
  Age: 53 Year
  Sex: Male

DRUGS (1)
  1. XALKORI [Suspect]
     Dosage: 200 MG, 1X/DAY
     Route: 048
     Dates: start: 20120201

REACTIONS (2)
  - Local swelling [Recovering/Resolving]
  - Halo vision [Recovered/Resolved]
